FAERS Safety Report 8460863-X (Version None)
Quarter: 2012Q2

REPORT INFORMATION
  Report Type: 
  Country: None (occurrence: None)
  Receive Date: 20120625
  Receipt Date: 20120620
  Transmission Date: 20120825
  Serious: Yes (Other)
  Sender: FDA-Public Use
  Company Number: US-AMGEN-USASP2012022613

PATIENT
  Age: 75 Year
  Sex: Male

DRUGS (3)
  1. XGEVA [Suspect]
     Indication: PROPHYLAXIS
     Dosage: 120 MG, Q4WK
     Route: 058
     Dates: start: 20110223, end: 20120307
  2. LUPRON [Concomitant]
  3. MULTIVITAMIN                       /00097801/ [Concomitant]

REACTIONS (1)
  - OSTEONECROSIS OF JAW [None]
